FAERS Safety Report 17648196 (Version 1)
Quarter: 2020Q2

REPORT INFORMATION
  Report Type: Report from Study
  Country: GB (occurrence: GB)
  Receive Date: 20200408
  Receipt Date: 20200408
  Transmission Date: 20200713
  Serious: Yes (Other)
  Sender: FDA-Public Use
  Company Number: GB-UCBSA-2020013560

PATIENT

DRUGS (1)
  1. BRIVARACETAM [Suspect]
     Active Substance: BRIVARACETAM
     Indication: EPILEPSY
     Dosage: VARIED 10 AND 200MG/DAY

REACTIONS (22)
  - Suicidal ideation [Unknown]
  - Sedation [Unknown]
  - Fatigue [Unknown]
  - Irritability [Unknown]
  - Tremor [Unknown]
  - Dissociation [Unknown]
  - Anxiety [Unknown]
  - Hallucination [Unknown]
  - Skin irritation [Unknown]
  - Abnormal behaviour [Unknown]
  - Nausea [Unknown]
  - Seizure [Unknown]
  - Headache [Unknown]
  - Mental impairment [Unknown]
  - Dizziness [Unknown]
  - Sleep disorder [Unknown]
  - Balance disorder [Unknown]
  - Drug ineffective [Unknown]
  - Mood altered [Unknown]
  - Aggression [Unknown]
  - Confusional state [Unknown]
  - Decreased appetite [Unknown]
